FAERS Safety Report 8832519 (Version 1)
Quarter: 2012Q4

REPORT INFORMATION
  Report Type: 
  Country: US (occurrence: US)
  Receive Date: 20121010
  Receipt Date: 20121010
  Transmission Date: 20130627
  Serious: Yes (Death, Hospitalization)
  Sender: FDA-Public Use
  Company Number: US-TEVA-333454USA

PATIENT
  Age: 58 Year
  Sex: Male

DRUGS (1)
  1. PROVIGIL [Suspect]

REACTIONS (3)
  - Ventricular tachycardia [Fatal]
  - Septic shock [Fatal]
  - Acute respiratory failure [Fatal]
